FAERS Safety Report 6150249-5 (Version None)
Quarter: 2009Q2

REPORT INFORMATION
  Report Type: 
  Country: None (occurrence: None)
  Receive Date: 20090409
  Receipt Date: 20090330
  Transmission Date: 20091009
  Serious: Yes (Hospitalization)
  Sender: FDA-Public Use
  Company Number: US-PFIZER INC-2009190602

PATIENT
  Age: 74 Year
  Sex: Male

DRUGS (1)
  1. FLAGYL [Suspect]
     Dosage: 500 MG, 3X/DAY
     Route: 048

REACTIONS (1)
  - CEREBELLAR SYNDROME [None]
